FAERS Safety Report 12221814 (Version 2)
Quarter: 2016Q2

REPORT INFORMATION
  Report Type: Spontaneous
  Country: NL (occurrence: NL)
  Receive Date: 20160330
  Receipt Date: 20160504
  Transmission Date: 20160815
  Serious: Yes (Hospitalization)
  Sender: FDA-Public Use
  Company Number: NL-PFIZER INC-2016178213

PATIENT
  Age: 78 Year
  Sex: Female
  Weight: 110 kg

DRUGS (10)
  1. SOMAVERT [Suspect]
     Active Substance: PEGVISOMANT
     Indication: ACROMEGALY
     Dosage: 20 MG, 1X/DAY
  2. METFORMINE [Concomitant]
     Active Substance: METFORMIN HYDROCHLORIDE
  3. THYRAX [Concomitant]
     Active Substance: LEVOTHYROXINE
  4. HYDROCORTISON [Concomitant]
     Active Substance: HYDROCORTISONE
  5. SOMAVERT [Suspect]
     Active Substance: PEGVISOMANT
     Dosage: 20 MG, 3X/WEEK
     Route: 058
     Dates: start: 20140305, end: 20140416
  6. SANDOSTATIN [Concomitant]
     Active Substance: OCTREOTIDE ACETATE
     Dosage: UNK
     Dates: start: 1989
  7. SOMAVERT [Suspect]
     Active Substance: PEGVISOMANT
     Dosage: 20 MG, 5X/WEEK
     Route: 058
     Dates: start: 20110216, end: 20140304
  8. CALCI CHEW [Concomitant]
  9. SOMAVERT [Suspect]
     Active Substance: PEGVISOMANT
     Dosage: 20 MG, 3X/WEEK
     Route: 058
     Dates: start: 20140417, end: 20141127
  10. SOMAVERT [Suspect]
     Active Substance: PEGVISOMANT
     Dosage: 20 MG, 2X/WEEK
     Route: 058
     Dates: start: 20141128

REACTIONS (4)
  - Cystitis noninfective [Recovered/Resolved]
  - Urinary tract infection bacterial [Recovered/Resolved]
  - Pneumonia [Recovered/Resolved]
  - Vulvovaginal mycotic infection [Unknown]

NARRATIVE: CASE EVENT DATE: 201603
